FAERS Safety Report 10413285 (Version 1)
Quarter: 2014Q3

REPORT INFORMATION
  Report Type: Spontaneous
  Country: US (occurrence: US)
  Receive Date: 20140827
  Receipt Date: 20140827
  Transmission Date: 20150326
  Serious: Yes (Disabling, Other)
  Sender: FDA-Public Use
  Company Number: US-BRISTOL-MYERS SQUIBB COMPANY-21323191

PATIENT
  Age: 78 Year
  Sex: Male

DRUGS (8)
  1. PRAVASTATIN SODIUM. [Concomitant]
     Active Substance: PRAVASTATIN SODIUM
  2. MIRALAX [Concomitant]
     Active Substance: POLYETHYLENE GLYCOL 3350
  3. PREDNISONE. [Concomitant]
     Active Substance: PREDNISONE
  4. ACETYLSALICYLIC ACID [Concomitant]
     Active Substance: ASPIRIN
  5. ELIQUIS [Suspect]
     Active Substance: APIXABAN
     Indication: CEREBROVASCULAR ACCIDENT PROPHYLAXIS
     Dates: start: 201403, end: 20140818
  6. FOLTX [Concomitant]
     Active Substance: CYANOCOBALAMIN CO-57\FOLIC ACID\PYRIDOXINE HYDROCHLORIDE
  7. CALCITRIOL. [Concomitant]
     Active Substance: CALCITRIOL
  8. METOPROLOL [Concomitant]
     Active Substance: METOPROLOL

REACTIONS (4)
  - Gout [Recovering/Resolving]
  - Haemorrhage [Not Recovered/Not Resolved]
  - Eye haemorrhage [Recovering/Resolving]
  - Contusion [Recovering/Resolving]
